FAERS Safety Report 17113914 (Version 1)
Quarter: 2019Q4

REPORT INFORMATION
  Report Type: Spontaneous
  Country: BR (occurrence: BR)
  Receive Date: 20191205
  Receipt Date: 20191205
  Transmission Date: 20200122
  Serious: Yes (Other)
  Sender: FDA-Public Use
  Company Number: ALC2019BR002018

PATIENT
  Age: 74 Year
  Sex: Female
  Weight: 64 kg

DRUGS (2)
  1. TEARS NATURALE FREE [Suspect]
     Active Substance: DEXTRAN 70\HYPROMELLOSE 2910 (4000 MPA.S)
     Indication: EYE LUBRICATION THERAPY
     Dosage: 1 DRP, QD (AT NIGHT)
     Route: 047
     Dates: start: 201907, end: 20191123
  2. CORTISONE [Concomitant]
     Active Substance: CORTISONE
     Indication: RESPIRATORY DISORDER
     Dosage: UNK
     Route: 065

REACTIONS (6)
  - Eye swelling [Recovered/Resolved]
  - Lacrimation increased [Recovered/Resolved]
  - Blindness [Recovered/Resolved]
  - Expired product administered [Recovered/Resolved]
  - Eye discharge [Recovered/Resolved]
  - Eyelid margin crusting [Recovered/Resolved]

NARRATIVE: CASE EVENT DATE: 20191123
